FAERS Safety Report 24109911 (Version 1)
Quarter: 2024Q3

REPORT INFORMATION
  Report Type: Spontaneous
  Country: US (occurrence: None)
  Receive Date: 20240717
  Receipt Date: 20240717
  Transmission Date: 20241017
  Serious: Yes (Other)
  Sender: Public
  Company Number: None

PATIENT
  Age: 81 Year
  Sex: Male

DRUGS (1)
  1. LENALIDOMIDE [Suspect]
     Active Substance: LENALIDOMIDE
     Indication: Monoclonal gammopathy
     Dosage: 5MG QOD ORAL?
     Route: 048
     Dates: start: 20190826

REACTIONS (2)
  - Oedema peripheral [None]
  - Peripheral swelling [None]

NARRATIVE: CASE EVENT DATE: 20240717
